FAERS Safety Report 7783745-5 (Version None)
Quarter: 2011Q3

REPORT INFORMATION
  Report Type: 
  Country: None (occurrence: None)
  Receive Date: 20110928
  Receipt Date: 20110922
  Transmission Date: 20111222
  Serious: Yes (Hospitalization, Other)
  Sender: FDA-Public Use
  Company Number: DE-ELI_LILLY_AND_COMPANY-DE201107005143

PATIENT
  Sex: Male
  Weight: 108.5 kg

DRUGS (11)
  1. ASPIRIN [Concomitant]
     Indication: ARTERIOSCLEROSIS CORONARY ARTERY
     Dosage: 100 MG, QD
     Route: 048
  2. GLIMEPIRID [Concomitant]
     Indication: TYPE 2 DIABETES MELLITUS
     Dosage: 1 MG, QD
     Route: 048
     Dates: start: 20110702, end: 20110705
  3. TIM-OPHTAL [Concomitant]
     Indication: GLAUCOMA
     Dosage: UNK, BID
     Route: 047
  4. ACE INHIBITORS AND DIURETICS [Concomitant]
     Dosage: UNK
  5. MICARDIS [Concomitant]
     Indication: HYPERTENSION
     Dosage: 80 MG, QD
     Route: 048
  6. AMLODIPINE BESYLATE [Concomitant]
     Indication: HYPERTENSION
     Dosage: 10 MG, QD
     Route: 048
  7. EMBOLEX [Concomitant]
     Indication: THROMBOSIS PROPHYLAXIS
     Dosage: 3000 U, QD
     Route: 058
     Dates: start: 20110622, end: 20110711
  8. BYETTA [Suspect]
     Indication: TYPE 2 DIABETES MELLITUS
     Dosage: 5 UG, QD
     Route: 058
     Dates: start: 20110628, end: 20110704
  9. METOPROLOL TARTRATE [Concomitant]
     Indication: HYPERTENSION
     Dosage: 100 MG, BID
     Route: 048
  10. METHIZOL [Concomitant]
     Indication: HYPERTHYROIDISM
     Dosage: 5 MG, QD
     Route: 048
  11. METFORMIN HCL [Concomitant]
     Indication: TYPE 2 DIABETES MELLITUS
     Dosage: 500 MG, TID
     Route: 048
     Dates: end: 20110731

REACTIONS (1)
  - PANCREATITIS [None]
